FAERS Safety Report 8274774 (Version 3)
Quarter: 2012Q4

REPORT INFORMATION
  Report Type: Report from Study
  Country: NL (occurrence: NL)
  Receive Date: 20111129
  Receipt Date: 20121121
  Transmission Date: 20130627
  Serious: Yes (Hospitalization)
  Sender: FDA-Public Use
  Company Number: NL-009507513-2011SP044470

PATIENT
  Age: 64 Year
  Sex: Male
  Weight: 74 kg

DRUGS (11)
  1. PLACEBO [Suspect]
     Indication: CHRONIC HEPATITIS C
     Dosage: 4 X 3 TABLET A DAY
     Route: 048
     Dates: start: 20100812, end: 20110616
  2. PEGINTRON [Suspect]
     Indication: CHRONIC HEPATITIS C
  3. REBETOL [Suspect]
     Indication: CHRONIC HEPATITIS C
  4. ATAZANAVIR [Suspect]
     Indication: HIV INFECTION
     Dosage: 300 mg, UNK
     Route: 048
     Dates: start: 20060510, end: 20110824
  5. RITONAVIR [Concomitant]
     Indication: HIV INFECTION
     Dosage: 400 mg, UNK
     Route: 048
     Dates: start: 20060107
  6. KIVEXA [Concomitant]
     Indication: HIV INFECTION
     Dosage: 1 DF, UNK
     Route: 048
     Dates: start: 20060107
  7. PAPAVERINE HYDROCHLORIDE (+) PHENTOLAMINE MESYLATE [Concomitant]
     Dates: start: 20110714
  8. GLIMEPIRIDE [Concomitant]
     Indication: TYPE 2 DIABETES MELLITUS
     Dates: start: 20110107
  9. REYATAZ [Concomitant]
  10. RALTEGRAVIR [Concomitant]
     Dates: start: 20110902
  11. POLYETHYLENE GLYCOL [Concomitant]

REACTIONS (3)
  - Cholelithiasis [Recovered/Resolved]
  - Cholecystectomy [Recovered/Resolved]
  - Pancreatitis [Recovering/Resolving]
